FAERS Safety Report 15633268 (Version 2)
Quarter: 2019Q1

REPORT INFORMATION
  Report Type: Spontaneous
  Country: AU (occurrence: AU)
  Receive Date: 20181119
  Receipt Date: 20190102
  Transmission Date: 20190417
  Serious: Yes (Hospitalization)
  Sender: FDA-Public Use
  Company Number: AU-SA-2018SA311742

PATIENT
  Sex: Male

DRUGS (2)
  1. LANTUS [Suspect]
     Active Substance: INSULIN GLARGINE
     Dosage: 36 U, HS
  2. APIDRA [Suspect]
     Active Substance: INSULIN GLULISINE
     Dosage: 30 UNITS AT BREAKFAST, 26 UNITS AT LUNCH AND 25 UNITS AT DINNER

REACTIONS (1)
  - Fall [Unknown]
